FAERS Safety Report 17821601 (Version 1)
Quarter: 2020Q2

REPORT INFORMATION
  Report Type: Spontaneous
  Country: GB (occurrence: GB)
  Receive Date: 20200525
  Receipt Date: 20200525
  Transmission Date: 20200714
  Serious: Yes (Hospitalization)
  Sender: FDA-Public Use
  Company Number: GB-DEXPHARM-20200428

PATIENT
  Age: 91 Year
  Sex: Female

DRUGS (4)
  1. OMEPRAZOLE. [Suspect]
     Active Substance: OMEPRAZOLE
  2. FUROSEMIDE. [Interacting]
     Active Substance: FUROSEMIDE
  3. LEVOTHYROXINE. [Concomitant]
     Active Substance: LEVOTHYROXINE
  4. MEMANTINE. [Concomitant]
     Active Substance: MEMANTINE

REACTIONS (2)
  - Drug interaction [Unknown]
  - Hyponatraemia [Unknown]
